FAERS Safety Report 5951540-5 (Version None)
Quarter: 2008Q4

REPORT INFORMATION
  Report Type: 
  Country: None (occurrence: None)
  Receive Date: 20081113
  Receipt Date: 20081104
  Transmission Date: 20090506
  Serious: Yes (Hospitalization)
  Sender: FDA-Public Use
  Company Number: US-JNJFOC-20080804913

PATIENT
  Sex: Female
  Weight: 36.7 kg

DRUGS (9)
  1. INFLIXIMAB [Suspect]
     Route: 042
  2. INFLIXIMAB [Suspect]
     Indication: CROHN'S DISEASE
     Route: 042
  3. MESALAMINE [Concomitant]
  4. MOTRIN [Concomitant]
     Indication: PAIN
  5. MULTI-VITAMIN [Concomitant]
  6. GENOTROPIN [Concomitant]
  7. ANTIHISTAMINES [Concomitant]
  8. ACETAMINOPHEN [Concomitant]
  9. PENTASA [Concomitant]

REACTIONS (11)
  - ANAEMIA [None]
  - BACTERIAL INFECTION [None]
  - BLOOD ALBUMIN DECREASED [None]
  - ENTEROCOCCAL INFECTION [None]
  - ENTEROCUTANEOUS FISTULA [None]
  - HYDRONEPHROSIS [None]
  - KLEBSIELLA INFECTION [None]
  - PELVIC ABSCESS [None]
  - SUBCUTANEOUS ABSCESS [None]
  - WEIGHT DECREASED [None]
  - WOUND INFECTION BACTERIAL [None]
